FAERS Safety Report 6672493-0 (Version None)
Quarter: 2010Q2

REPORT INFORMATION
  Report Type: 
  Country: None (occurrence: None)
  Receive Date: 20100408
  Receipt Date: 20100330
  Transmission Date: 20101027
  Serious: Yes (Other)
  Sender: FDA-Public Use
  Company Number: ES-B.I. PHARMACEUTICALS,INC./RIDGEFIELD-2010-BP-03947YA

PATIENT
  Age: 68 Year
  Sex: Male

DRUGS (1)
  1. OMNIC OCAS ORODISPERSABLE [Suspect]
     Indication: PROSTATISM
     Dosage: 0.4 MG
     Route: 048
     Dates: start: 20090825, end: 20100126

REACTIONS (1)
  - PENIS DEVIATION [None]
